FAERS Safety Report 6350874-2 (Version None)
Quarter: 2009Q3

REPORT INFORMATION
  Report Type: 
  Country: None (occurrence: None)
  Receive Date: 20090912
  Receipt Date: 20090622
  Transmission Date: 20100115
  Serious: No
  Sender: FDA-Public Use
  Company Number: US-ABBOTT-07P-163-0369707-00

PATIENT
  Sex: Female
  Weight: 57.658 kg

DRUGS (2)
  1. HUMIRA [Suspect]
     Indication: RHEUMATOID ARTHRITIS
     Route: 058
     Dates: start: 20070524, end: 20070524
  2. MELOXICAM [Concomitant]
     Indication: RHEUMATOID ARTHRITIS

REACTIONS (7)
  - CHEST PAIN [None]
  - DIZZINESS [None]
  - DYSGEUSIA [None]
  - INCORRECT DOSE ADMINISTERED [None]
  - SENSORY DISTURBANCE [None]
  - SWOLLEN TONGUE [None]
  - THROAT IRRITATION [None]
